FAERS Safety Report 8391541 (Version 3)
Quarter: 2012Q4

REPORT INFORMATION
  Report Type: 
  Country: ES (occurrence: ES)
  Receive Date: 20120206
  Receipt Date: 20121001
  Transmission Date: 20130627
  Serious: Yes (Death, Other)
  Sender: FDA-Public Use
  Company Number: ES-ELI_LILLY_AND_COMPANY-ES201201007158

PATIENT
  Age: 83 None
  Sex: Female
  Weight: 32.5 kg

DRUGS (10)
  1. FORSTEO [Suspect]
     Indication: OSTEOPOROSIS
     Dosage: 20 ug, qd
     Route: 058
     Dates: start: 20110123, end: 201112
  2. PREGABALIN [Concomitant]
     Indication: NEURALGIA
     Dosage: 1 DF, qd
     Route: 048
  3. OMEPRAZOL [Concomitant]
     Indication: GASTRITIS PROPHYLAXIS
     Dosage: 1 DF, qd
     Route: 048
  4. FOLIC ACID [Concomitant]
     Dosage: 1 DF, qd
     Route: 048
  5. FERROGRADUMET [Concomitant]
     Indication: ANAEMIA
     Dosage: 2 DF, qd
     Route: 048
  6. EPREX [Concomitant]
     Dosage: 1 DF, weekly (1/W)
     Route: 058
  7. FUROSEMIDE [Concomitant]
     Indication: DIURETIC THERAPY
     Dosage: 1 DF, qd
     Route: 048
  8. DIGOXINE [Concomitant]
     Indication: CARDIAC DISORDER
     Dosage: 1 DF, other
     Route: 048
  9. ASPIRIN [Concomitant]
     Indication: CARDIAC DISORDER
     Dosage: 1 DF, qd
     Route: 048
  10. MAYGACE [Concomitant]
     Indication: INCREASED APPETITE
     Dosage: 10 UNK, UNK
     Route: 048

REACTIONS (2)
  - Death [Fatal]
  - Parkinson^s disease [Recovering/Resolving]
